FAERS Safety Report 19387372 (Version 1)
Quarter: 2021Q2

REPORT INFORMATION
  Report Type: Spontaneous
  Country: FR (occurrence: FR)
  Receive Date: 20210608
  Receipt Date: 20210608
  Transmission Date: 20210717
  Serious: Yes (Hospitalization)
  Sender: FDA-Public Use
  Company Number: FR-MYLANLABS-2021M1032373

PATIENT
  Age: 75 Year
  Sex: Female
  Weight: 57 kg

DRUGS (11)
  1. LEVOTHYROX [Concomitant]
     Active Substance: LEVOTHYROXINE
     Dosage: 75 MICROGRAM, QD
     Route: 048
  2. MORPHINE [Concomitant]
     Active Substance: MORPHINE
     Dosage: UNK
     Dates: start: 20201119
  3. PREGABALINE [Concomitant]
     Active Substance: PREGABALIN
     Dosage: 250 MILLIGRAM, QD
     Route: 048
  4. CLOBETASOL                         /00337102/ [Concomitant]
     Active Substance: CLOBETASOL
     Dosage: UNK
     Route: 003
  5. LIDOCAINE                          /00033402/ [Suspect]
     Active Substance: LIDOCAINE
     Indication: BRONCHOALVEOLAR LAVAGE
     Dosage: UNKNOWN
     Route: 048
     Dates: start: 20201208
  6. CEFTRIAXONE. [Suspect]
     Active Substance: CEFTRIAXONE
     Indication: INTERVERTEBRAL DISCITIS
     Dosage: 1000 MG FROM 11/23/2020 TO 11/24/2020 AND 2000 MG FROM 11/25/2020 TO 12/09/2020
     Route: 042
     Dates: start: 20201123, end: 20201209
  7. TARDYFERON [Concomitant]
     Active Substance: FERROUS SULFATE
     Dosage: 80 MEGABECQUEREL
  8. AMLODIPINE [Concomitant]
     Active Substance: AMLODIPINE BESYLATE
     Dosage: 5 MILLIGRAM, QD
     Route: 048
  9. PANTOPRAZOLE [Concomitant]
     Active Substance: PANTOPRAZOLE
     Dosage: 20 MILLIGRAM, QD
     Route: 048
  10. LEVOFLOXACIN. [Suspect]
     Active Substance: LEVOFLOXACIN
     Indication: INTERVERTEBRAL DISCITIS
     Dosage: 500 MILLIGRAM, QD
     Route: 048
     Dates: start: 20201130, end: 20201209
  11. HYDROXYZINE MYLAN [Suspect]
     Active Substance: HYDROXYZINE HYDROCHLORIDE
     Indication: PREMEDICATION
     Dosage: THE 25/11/2020 AND THE 8/12/2020
     Route: 048
     Dates: start: 20201125, end: 20201208

REACTIONS (1)
  - Rash pruritic [Recovering/Resolving]

NARRATIVE: CASE EVENT DATE: 20201208
